FAERS Safety Report 4321085-7 (Version None)
Quarter: 2004Q1

REPORT INFORMATION
  Report Type: 
  Country: None (occurrence: None)
  Receive Date: 20040322
  Receipt Date: 20040322
  Transmission Date: 20041129
  Serious: No
  Sender: FDA-Public Use
  Company Number: None

PATIENT
  Age: 35 Year
  Sex: Female
  Weight: 58.9676 kg

DRUGS (1)
  1. LAMISIL 250 MG TABS - NOVARTIS [Suspect]
     Indication: ONYCHOMYCOSIS
     Dosage: 250MG PO DAILY
     Route: 048
     Dates: start: 20040204, end: 20040320

REACTIONS (3)
  - AGEUSIA [None]
  - DYSGEUSIA [None]
  - RASH [None]
